FAERS Safety Report 16843456 (Version 1)
Quarter: 2019Q3

REPORT INFORMATION
  Report Type: Spontaneous
  Country: US (occurrence: US)
  Receive Date: 20190802
  Receipt Date: 20190802
  Transmission Date: 20191005
  Serious: No
  Sender: FDA-Public Use
  Company Number: None

PATIENT
  Age: 73 Year
  Sex: Male

DRUGS (13)
  1. DIPHENOXYLATE/ATROPINE [Concomitant]
     Active Substance: ATROPINE\DIPHENOXYLATE
  2. LOPERAMIDE [Concomitant]
     Active Substance: LOPERAMIDE
  3. ATORVASTATIN [Concomitant]
     Active Substance: ATORVASTATIN
  4. CHOLECALCIFEROL [Concomitant]
     Active Substance: CHOLECALCIFEROL
  5. TRAMADOL. [Concomitant]
     Active Substance: TRAMADOL
  6. WARFARIN [Concomitant]
     Active Substance: WARFARIN
  7. WARFARIN [Suspect]
     Active Substance: WARFARIN
     Indication: ATRIAL FIBRILLATION
     Route: 048
     Dates: start: 19940101, end: 20190313
  8. PHYTONADIONE. [Concomitant]
     Active Substance: PHYTONADIONE
  9. PREDNISONE. [Concomitant]
     Active Substance: PREDNISONE
  10. DIGOXIN. [Concomitant]
     Active Substance: DIGOXIN
  11. DRONABINOL. [Concomitant]
     Active Substance: DRONABINOL
  12. CYANOCOHALAMIN [Concomitant]
  13. METOPROLOL SUCCINAGTE [Concomitant]

REACTIONS (7)
  - Head injury [None]
  - International normalised ratio increased [None]
  - Fall [None]
  - Headache [None]
  - Seizure [None]
  - Subdural haematoma [None]
  - Brain midline shift [None]

NARRATIVE: CASE EVENT DATE: 20190314
